FAERS Safety Report 9972789 (Version 1)
Quarter: 2014Q1

REPORT INFORMATION
  Report Type: Report from Study
  Country: US (occurrence: US)
  Receive Date: 20140306
  Receipt Date: 20140306
  Transmission Date: 20141002
  Serious: Yes (Other)
  Sender: FDA-Public Use
  Company Number: US-JNJFOC-20140218095

PATIENT
  Age: 61 Year
  Sex: Male
  Weight: 111.13 kg

DRUGS (3)
  1. INVOKANA [Suspect]
     Indication: TYPE 2 DIABETES MELLITUS
     Route: 048
     Dates: start: 201402
  2. GLYBURIDE [Concomitant]
     Indication: DIABETES MELLITUS
     Dosage: TAKING MEDICATION FOR ^ABOUT 20 YEARS^
     Route: 048
  3. METFORMIN [Concomitant]
     Indication: DIABETES MELLITUS
     Dosage: TAKING MEDICATION FOR ^8 TO 10 YEARS^
     Route: 048

REACTIONS (3)
  - Weight decreased [Unknown]
  - Fatigue [Recovered/Resolved]
  - Feeling abnormal [Recovered/Resolved]
